FAERS Safety Report 11146841 (Version 2)
Quarter: 2015Q2

REPORT INFORMATION
  Report Type: Spontaneous
  Country: CN (occurrence: CN)
  Receive Date: 20150528
  Receipt Date: 20150626
  Transmission Date: 20150821
  Serious: Yes (Death, Hospitalization)
  Sender: FDA-Public Use
  Company Number: PHHY2015CN064695

PATIENT
  Age: 72 Year
  Sex: Female

DRUGS (1)
  1. ACLASTA [Suspect]
     Active Substance: ZOLEDRONIC ACID
     Indication: OSTEOPOROSIS
     Dosage: UNK
     Route: 042
     Dates: start: 20150523

REACTIONS (5)
  - Chills [Unknown]
  - Concomitant disease aggravated [Unknown]
  - Pyrexia [Unknown]
  - Lung infection [Unknown]
  - Death [Fatal]

NARRATIVE: CASE EVENT DATE: 20150524
